FAERS Safety Report 16111484 (Version 1)
Quarter: 2019Q2

REPORT INFORMATION
  Report Type: Spontaneous
  Country: US (occurrence: US)
  Receive Date: 20190322
  Receipt Date: 20190322
  Transmission Date: 20190711
  Serious: Yes (Hospitalization)
  Sender: FDA-Public Use
  Company Number: None

PATIENT
  Sex: Female

DRUGS (13)
  1. PREDNISONE TAB 5MG [Concomitant]
     Active Substance: PREDNISONE
  2. MYCOPHENOLATE [Suspect]
     Active Substance: MYCOPHENOLIC ACID
     Indication: RENAL TRANSPLANT
     Route: 048
     Dates: start: 20160203
  3. ACID BLOCKER PAK DEPLETIO [Concomitant]
  4. CALCIUM TAB 600MG [Concomitant]
  5. ENALAPRIL TAB 5MG [Concomitant]
  6. HYDROCHLOROT TAB 25MG [Concomitant]
  7. METOPROL TAR TAB 25MG [Concomitant]
  8. VITAMIN C TAB 1000MG [Concomitant]
  9. B COMPLEX CAP [Concomitant]
  10. GARLIC CAP 500MG [Concomitant]
  11. MAGNESIUM GL TAB 550MG [Concomitant]
  12. TACROLIMUS. [Suspect]
     Active Substance: TACROLIMUS
     Indication: RENAL TRANSPLANT
     Route: 048
     Dates: start: 20160203
  13. IRON TAB 65MG [Concomitant]

REACTIONS (3)
  - Product dose omission [None]
  - Hypertension [None]
  - Pneumonia [None]
